FAERS Safety Report 25842424 (Version 2)
Quarter: 2025Q4

REPORT INFORMATION
  Report Type: Spontaneous
  Country: US (occurrence: US)
  Receive Date: 20250924
  Receipt Date: 20251023
  Transmission Date: 20260118
  Serious: Yes (Death, Other)
  Sender: AMGEN
  Company Number: US-AMGEN-USASP2025186917

PATIENT
  Sex: Female

DRUGS (1)
  1. BEVACIZUMAB [Suspect]
     Active Substance: BEVACIZUMAB
     Indication: Ovarian cancer stage IV
     Dosage: UNK
     Route: 065

REACTIONS (7)
  - Death [Fatal]
  - Ovarian cancer recurrent [Unknown]
  - Ovarian cancer stage IV [Unknown]
  - Metastases to meninges [Unknown]
  - Therapeutic product effect incomplete [Unknown]
  - Pleural effusion [Unknown]
  - Pulmonary mass [Unknown]
